FAERS Safety Report 15658746 (Version 2)
Quarter: 2018Q4

REPORT INFORMATION
  Report Type: Report from Study
  Country: US (occurrence: US)
  Receive Date: 20181126
  Receipt Date: 20181213
  Transmission Date: 20190205
  Serious: Yes (Death, Hospitalization)
  Sender: FDA-Public Use
  Company Number: US-GILEAD-2018-0376452

PATIENT
  Age: 69 Year
  Sex: Male

DRUGS (1)
  1. RANOLAZINE. [Suspect]
     Active Substance: RANOLAZINE
     Indication: ANGINA PECTORIS
     Dosage: ^1000MG,^ ORAL, TWICE DAILY
     Route: 048

REACTIONS (2)
  - Chest pain [Fatal]
  - Hypertension [Fatal]

NARRATIVE: CASE EVENT DATE: 201809
